FAERS Safety Report 5207950-7 (Version None)
Quarter: 2007Q1

REPORT INFORMATION
  Report Type: 
  Country: None (occurrence: None)
  Receive Date: 20070115
  Receipt Date: 20070109
  Transmission Date: 20070707
  Serious: Yes (Hospitalization, Other)
  Sender: FDA-Public Use
  Company Number: US-ELI_LILLY_AND_COMPANY-US200609003660

PATIENT
  Age: 39 Year
  Sex: Female
  Weight: 51.247 kg

DRUGS (3)
  1. ZYPREXA [Suspect]
     Dates: start: 20051201
  2. DIVALPROEX SODIUM [Concomitant]
     Dates: start: 20050101
  3. BUPROPION HCL [Concomitant]
     Dates: start: 20060101

REACTIONS (5)
  - DYSTONIA [None]
  - HEPATITIS VIRAL [None]
  - HYPOGLYCAEMIA [None]
  - MEMORY IMPAIRMENT [None]
  - PARANOIA [None]
